FAERS Safety Report 9240824 (Version 1)
Quarter: 2013Q1

REPORT INFORMATION
  Report Type: Spontaneous
  Country: US (occurrence: None)
  Receive Date: 20121120
  Receipt Date: 20121120
  Transmission Date: 20140127
  Serious: No
  Sender: FDA-Public Use
  Company Number: 1000039609

PATIENT
  Age: 79 Year
  Sex: Female

DRUGS (7)
  1. VIIBRYD (VILAZODONE HYDROCHLORIDE) ( 10 MILLIGRAM, TABLETS) [Suspect]
     Indication: DEPRESSION
     Dosage: 10 MG (10 MG, 1 IN 1 D), ORAL
     Route: 048
     Dates: start: 20121008, end: 20121014
  2. VIIBRYD (VILAZODONE HYDROCHLORIDE) [Suspect]
     Indication: DEPRESSION
     Dosage: 20 MG (20 MG, 1 IN 1 D), ORAL
     Route: 048
     Dates: start: 20121015
  3. SINEMET (SINEMET) (SINEMET) [Concomitant]
  4. ATIVAN (LORAZEPAM) (LORAZEPAM) [Concomitant]
  5. HIGH BLOOD PRESSURE MEDICATION NOS (HIGH BLOOD PRESSURE MEDICATION NOS) (HIGH BLOOD PRESSURE MEDICATION NOS) [Concomitant]
  6. HIGH CHOLESTEROL MEDICATION NOS (HIGH CHOLESTEROL MEDICATION NOS) (HIGH CHOLESTEROL MEDICATION NOS) [Concomitant]
  7. OCT EQUILIBRIUM MEDICATION NOS (OTC EQUILIBRIUM MEDICATION NOS) (OTC EQUILIBRIUM MEDICATION NOS) [Concomitant]

REACTIONS (4)
  - Disorientation [None]
  - Paranoia [None]
  - Aphasia [None]
  - Insomnia [None]
